FAERS Safety Report 11024515 (Version 1)
Quarter: 2015Q2

REPORT INFORMATION
  Report Type: Spontaneous
  Country: US (occurrence: US)
  Receive Date: 20150414
  Receipt Date: 20150414
  Transmission Date: 20150821
  Serious: Yes (Other)
  Sender: FDA-Public Use
  Company Number: US-BEH-2015050184

PATIENT
  Sex: Female
  Weight: 82 kg

DRUGS (10)
  1. LMX [Concomitant]
     Active Substance: LIDOCAINE
  2. BUDESONIDE. [Concomitant]
     Active Substance: BUDESONIDE
     Dosage: 0.25MG/2ML
  3. TYLENOL [Concomitant]
     Active Substance: ACETAMINOPHEN
  4. DIPHENHYDRAMINE [Concomitant]
     Active Substance: DIPHENHYDRAMINE
  5. HIZENTRA [Suspect]
     Active Substance: HUMAN IMMUNOGLOBULIN G
     Indication: PRODUCT USED FOR UNKNOWN INDICATION
     Route: 058
  6. PREDNISONE. [Concomitant]
     Active Substance: PREDNISONE
  7. EPIPEN [Concomitant]
     Active Substance: EPINEPHRINE
  8. AMOXICILLIN. [Concomitant]
     Active Substance: AMOXICILLIN
  9. LIDOCAINE/PRILOCAINE [Concomitant]
  10. MELOXICAM. [Concomitant]
     Active Substance: MELOXICAM

REACTIONS (1)
  - Cerebrovascular accident [Unknown]
